FAERS Safety Report 11184660 (Version 2)
Quarter: 2015Q2

REPORT INFORMATION
  Report Type: Spontaneous
  Country: US (occurrence: None)
  Receive Date: 20150528
  Receipt Date: 20150625
  Transmission Date: 20150821
  Serious: Yes (Other)
  Sender: FDA-Public Use
  Company Number: PHEH2015US002138

PATIENT
  Age: 61 Year
  Sex: Female
  Weight: 101.6 kg

DRUGS (1)
  1. AFINITOR [Suspect]
     Active Substance: EVEROLIMUS
     Indication: PRODUCT USED FOR UNKNOWN INDICATION
     Route: 048

REACTIONS (3)
  - Oedema [None]
  - Oedema peripheral [None]
  - Stomatitis [None]

NARRATIVE: CASE EVENT DATE: 20141201
